FAERS Safety Report 6557599-9 (Version None)
Quarter: 2010Q1

REPORT INFORMATION
  Report Type: 
  Country: None (occurrence: None)
  Receive Date: 20100129
  Receipt Date: 20100112
  Transmission Date: 20100710
  Serious: Yes (Other)
  Sender: FDA-Public Use
  Company Number: PHEH2010US00790

PATIENT
  Sex: Female

DRUGS (9)
  1. LESCOL XL [Suspect]
     Dosage: 80 MG, UNK
     Dates: start: 20080501, end: 20080801
  2. CELEXA [Concomitant]
     Dosage: UNK, UNK
     Dates: start: 20090101
  3. PEPCID [Concomitant]
     Dosage: UNK, UNK
  4. NASONEX [Concomitant]
     Dosage: UNK, UNK
  5. COREG [Concomitant]
     Dosage: UNK, UNK
  6. PLAVIX [Concomitant]
     Dosage: 75 MG, UNK
  7. PROZAC [Concomitant]
     Dosage: UNK, UNK
  8. LITHIUM CARBONATE [Concomitant]
     Dosage: 300 MG, UNK
  9. VAGIFEM [Concomitant]
     Dosage: 25 MG, UNK

REACTIONS (9)
  - ASTHENIA [None]
  - DYSKINESIA [None]
  - FALL [None]
  - GAIT DISTURBANCE [None]
  - MUSCLE SPASMS [None]
  - MUSCULOSKELETAL CHEST PAIN [None]
  - PRURITUS [None]
  - RASH GENERALISED [None]
  - SKIN DISORDER [None]
